FAERS Safety Report 23240180 (Version 1)
Quarter: 2023Q4

REPORT INFORMATION
  Report Type: Spontaneous
  Country: NO (occurrence: NO)
  Receive Date: 20231129
  Receipt Date: 20231129
  Transmission Date: 20240109
  Serious: Yes (Hospitalization, Disabling)
  Sender: FDA-Public Use
  Company Number: None

PATIENT
  Age: 69 Year
  Sex: Male

DRUGS (1)
  1. QUTENZA [Suspect]
     Active Substance: CAPSAICIN
     Indication: Neuralgia
     Dosage: 179 MILLIGRAM, ONCE
     Route: 003
     Dates: start: 20230801, end: 20230801

REACTIONS (1)
  - Application site wound [Recovered/Resolved with Sequelae]

NARRATIVE: CASE EVENT DATE: 20230811
